FAERS Safety Report 5114833-X (Version None)
Quarter: 2006Q3

REPORT INFORMATION
  Report Type: 
  Country: None (occurrence: None)
  Receive Date: 20060926
  Receipt Date: 20060426
  Transmission Date: 20061208
  Serious: Yes (Hospitalization)
  Sender: FDA-Public Use
  Company Number: FR-BAYER-200610407BFR

PATIENT
  Age: 83 Year
  Sex: Female

DRUGS (8)
  1. MOXIFLOXACIN HYDROCHLORIDE [Suspect]
     Indication: BRONCHITIS
     Dosage: TOTAL DAILY DOSE: 400 MG  UNIT DOSE: 400 MG
     Route: 048
     Dates: start: 20060305, end: 20060312
  2. PIRACETAM [Concomitant]
     Indication: UNEVALUABLE EVENT
     Dosage: TOTAL DAILY DOSE: 2400 MG
     Route: 048
  3. VASTAREL [Concomitant]
     Indication: UNEVALUABLE EVENT
     Dosage: TOTAL DAILY DOSE: 70 MG
     Route: 048
  4. BROMAZEPAM [Concomitant]
     Indication: UNEVALUABLE EVENT
     Route: 048
  5. LERCAN [Concomitant]
     Indication: UNEVALUABLE EVENT
     Dosage: TOTAL DAILY DOSE: 20 MG
     Route: 048
     Dates: start: 20060101
  6. NASONEX [Concomitant]
     Indication: UNEVALUABLE EVENT
     Route: 045
  7. TRINITRINE [Concomitant]
     Indication: UNEVALUABLE EVENT
  8. ZOLPIDEM TARTRATE [Concomitant]
     Indication: UNEVALUABLE EVENT
     Route: 048

REACTIONS (4)
  - DERMATITIS BULLOUS [None]
  - LEUKOCYTOCLASTIC VASCULITIS [None]
  - OEDEMA PERIPHERAL [None]
  - PURPURA [None]
